FAERS Safety Report 7495714-3 (Version None)
Quarter: 2011Q2

REPORT INFORMATION
  Report Type: 
  Country: None (occurrence: None)
  Receive Date: 20110523
  Receipt Date: 20110513
  Transmission Date: 20111010
  Serious: Yes (Hospitalization)
  Sender: FDA-Public Use
  Company Number: US-US-EMD SERONO, INC.-7003942

PATIENT
  Sex: Female

DRUGS (5)
  1. FLORINEF [Concomitant]
     Indication: ORTHOSTATIC HYPOTENSION
     Dates: start: 20050101
  2. REBIF [Suspect]
     Indication: MULTIPLE SCLEROSIS
     Route: 058
     Dates: start: 20090925
  3. LAMICTAL [Concomitant]
     Indication: TEMPORAL LOBE EPILEPSY
     Dates: start: 20060101
  4. POTASSIUM CHLORIDE [Concomitant]
     Indication: BLOOD POTASSIUM DECREASED
  5. TOPROL-XL [Concomitant]
     Indication: AUTONOMIC NERVOUS SYSTEM IMBALANCE
     Dates: start: 20050101

REACTIONS (4)
  - VERTIGO [None]
  - MUSCULAR WEAKNESS [None]
  - OPTIC NEURITIS [None]
  - FATIGUE [None]
